FAERS Safety Report 18116858 (Version 1)
Quarter: 2020Q3

REPORT INFORMATION
  Report Type: Spontaneous
  Country: US (occurrence: US)
  Receive Date: 20200805
  Receipt Date: 20200805
  Transmission Date: 20201103
  Serious: Yes (Hospitalization, Other)
  Sender: FDA-Public Use
  Company Number: US-PURDUE-USA-2020-0159995

PATIENT

DRUGS (1)
  1. OXYCONTIN [Suspect]
     Active Substance: OXYCODONE HYDROCHLORIDE
     Indication: ABDOMINAL PAIN
     Dosage: UNK
     Route: 048
     Dates: start: 201808

REACTIONS (6)
  - Withdrawal syndrome [Unknown]
  - Cardiac failure [Unknown]
  - Pain [Unknown]
  - Impaired quality of life [Unknown]
  - Drug dependence [Unknown]
  - Abdominal pain [Unknown]
